FAERS Safety Report 21198450 (Version 7)
Quarter: 2024Q2

REPORT INFORMATION
  Report Type: Report from Study
  Country: NO (occurrence: NO)
  Receive Date: 20220811
  Receipt Date: 20240613
  Transmission Date: 20240716
  Serious: Yes (Death, Life-Threatening, Hospitalization, Disabling, Other)
  Sender: FDA-Public Use
  Company Number: NO-CELGENE-NOR-2016095750

PATIENT
  Age: 82 Year
  Sex: Male
  Weight: 78 kg

DRUGS (13)
  1. POMALIDOMIDE [Suspect]
     Active Substance: POMALIDOMIDE
     Indication: Plasma cell myeloma
     Dosage: X 1
     Route: 048
     Dates: start: 20160912, end: 20160921
  2. POMALIDOMIDE [Suspect]
     Active Substance: POMALIDOMIDE
     Dosage: FREQUENCY TEXT: NOT PROVIDED
     Route: 048
     Dates: start: 20160922, end: 20161012
  3. POMALIDOMIDE [Suspect]
     Active Substance: POMALIDOMIDE
     Dosage: X 1
     Route: 048
     Dates: start: 20161013, end: 20161016
  4. DEXAMETHASONE [Suspect]
     Active Substance: DEXAMETHASONE
     Indication: Plasma cell myeloma
     Dosage: FREQUENCY TEXT: NOT PROVIDED?20MG?DURATION TEXT : CYCLE 1
     Route: 048
     Dates: start: 20160912
  5. DEXAMETHASONE [Suspect]
     Active Substance: DEXAMETHASONE
     Dosage: FREQUENCY TEXT: NOT PROVIDED?20MG?DURATION TEXT : CYCLE 1
     Route: 048
     Dates: start: 20160919, end: 20160919
  6. DEXAMETHASONE [Suspect]
     Active Substance: DEXAMETHASONE
     Dosage: FREQUENCY TEXT: NOT PROVIDED?20MG
     Route: 048
     Dates: start: 20160926
  7. DEXAMETHASONE [Suspect]
     Active Substance: DEXAMETHASONE
     Dosage: FREQUENCY TEXT: NOT PROVIDED?20MG
     Route: 048
     Dates: start: 20161013
  8. DEXAMETHASONE [Suspect]
     Active Substance: DEXAMETHASONE
     Dosage: FREQUENCY TEXT: NOT PROVIDED?20MG
     Route: 048
     Dates: start: 20161016
  9. MAGNESIUM [Concomitant]
     Active Substance: MAGNESIUM
     Indication: Product used for unknown indication
     Dosage: 360 MILLIGRAM
  10. CALCIUM [Concomitant]
     Active Substance: CALCIUM
     Indication: Product used for unknown indication
     Dosage: FREQUENCY TEXT: NOT PROVIDED?NOT PROVIDED
  11. WHOLE BLOOD [Concomitant]
     Active Substance: WHOLE BLOOD
     Indication: Product used for unknown indication
     Dosage: FREQUENCY TEXT: NOT PROVIDED?1 UNIT
  12. METOPROLOL [Concomitant]
     Active Substance: METOPROLOL
  13. AMLODIPINE [Concomitant]
     Active Substance: AMLODIPINE BESYLATE

REACTIONS (14)
  - Atrial fibrillation [Recovered/Resolved with Sequelae]
  - Diarrhoea [Recovered/Resolved]
  - Renal failure [Fatal]
  - Urinary tract infection [Recovered/Resolved]
  - Cardiac failure [Fatal]
  - Hypomagnesaemia [Not Recovered/Not Resolved]
  - Pain in extremity [Not Recovered/Not Resolved]
  - Hypocalcaemia [Not Recovered/Not Resolved]
  - Dyspnoea [Not Recovered/Not Resolved]
  - Pulmonary congestion [Fatal]
  - Hypoxia [Not Recovered/Not Resolved]
  - Pleural effusion [Fatal]
  - Atrial flutter [Fatal]
  - Oedema [Not Recovered/Not Resolved]

NARRATIVE: CASE EVENT DATE: 20160913
